FAERS Safety Report 23700532 (Version 2)
Quarter: 2024Q2

REPORT INFORMATION
  Report Type: Spontaneous
  Country: DE (occurrence: DE)
  Receive Date: 20240403
  Receipt Date: 20240414
  Transmission Date: 20240715
  Serious: Yes (Death, Other)
  Sender: FDA-Public Use
  Company Number: DE-SANDOZ-SDZ2024DE028583

PATIENT
  Age: 69 Year
  Sex: Male

DRUGS (8)
  1. HYDROMORPHONE [Suspect]
     Active Substance: HYDROMORPHONE
     Indication: Metastases to bone
     Dosage: UNK
     Route: 065
  2. HYDROMORPHONE [Suspect]
     Active Substance: HYDROMORPHONE
     Indication: Hormone-refractory prostate cancer
  3. DEXAMETHASONE [Suspect]
     Active Substance: DEXAMETHASONE
     Indication: Metastases to bone
     Dosage: UNK
     Route: 065
  4. DEXAMETHASONE [Suspect]
     Active Substance: DEXAMETHASONE
     Indication: Hormone-refractory prostate cancer
  5. NAPROXEN [Suspect]
     Active Substance: NAPROXEN
     Indication: Hormone-refractory prostate cancer
     Dosage: UNK
     Route: 065
  6. NAPROXEN [Suspect]
     Active Substance: NAPROXEN
     Indication: Metastases to bone
  7. PREGABALIN [Suspect]
     Active Substance: PREGABALIN
     Indication: Hormone-refractory prostate cancer
     Dosage: UNK
     Route: 065
  8. PREGABALIN [Suspect]
     Active Substance: PREGABALIN
     Indication: Metastases to bone

REACTIONS (4)
  - Death [Fatal]
  - Myelosuppression [Unknown]
  - Oedema peripheral [Unknown]
  - Product use in unapproved indication [Unknown]
